FAERS Safety Report 9831488 (Version 1)
Quarter: 2014Q1

REPORT INFORMATION
  Report Type: Spontaneous
  Country: IT (occurrence: IT)
  Receive Date: 20140121
  Receipt Date: 20140121
  Transmission Date: 20141002
  Serious: Yes (Hospitalization)
  Sender: FDA-Public Use
  Company Number: IT-ROCHE-1335889

PATIENT
  Sex: Male

DRUGS (11)
  1. LUCENTIS [Suspect]
     Indication: RETINAL NEOVASCULARISATION
     Dosage: 1 POST UNIT
     Route: 050
     Dates: start: 20121219
  2. LUCENTIS [Suspect]
     Dosage: 1 POST UNIT
     Route: 050
     Dates: start: 20130305
  3. LUCENTIS [Suspect]
     Dosage: 1 POST UNIT
     Route: 050
     Dates: start: 20131029
  4. TICLOPIDINE [Concomitant]
     Route: 065
  5. ALLOPURINOL [Concomitant]
     Route: 065
  6. BISOPROLOL [Concomitant]
  7. CANRENOIC ACID [Concomitant]
  8. MINITRAN (ITALY) [Concomitant]
  9. ZOCOR [Concomitant]
  10. LASIX [Concomitant]
  11. LANOXIN [Concomitant]

REACTIONS (1)
  - Cerebrovascular accident [Recovering/Resolving]
